FAERS Safety Report 23296037 (Version 1)
Quarter: 2023Q4

REPORT INFORMATION
  Report Type: Spontaneous
  Country: US (occurrence: None)
  Receive Date: 20231213
  Receipt Date: 20231213
  Transmission Date: 20240110
  Serious: Yes (Hospitalization)
  Sender: FDA-Public Use
  Company Number: None

PATIENT
  Age: 45 Year
  Sex: Female
  Weight: 122.6 kg

DRUGS (12)
  1. OMADACYCLINE [Suspect]
     Active Substance: OMADACYCLINE
     Indication: Osteomyelitis
     Dosage: 300 MG DAILY ORAL
     Route: 048
     Dates: start: 20231129, end: 20231130
  2. AMLODIPINE [Concomitant]
     Active Substance: AMLODIPINE BESYLATE
     Dates: start: 20221220
  3. ATORVASTATIN [Concomitant]
     Active Substance: ATORVASTATIN
     Dates: start: 20230505
  4. CINACALCET [Concomitant]
     Active Substance: CINACALCET
     Dates: start: 20231005
  5. INSULIN NOS [Concomitant]
     Active Substance: INSULIN NOS
     Dates: start: 20230127
  6. METOCLOPRAMIDE [Concomitant]
     Active Substance: METOCLOPRAMIDE
     Dates: start: 20230711
  7. NALOXONE [Concomitant]
     Active Substance: NALOXONE
     Dates: start: 20221220
  8. PANTOPRAZOLE [Concomitant]
     Active Substance: PANTOPRAZOLE
     Dates: start: 20230408
  9. PREDNISONE [Concomitant]
     Active Substance: PREDNISONE
     Dates: start: 20230824
  10. TACROLIMUS [Concomitant]
     Active Substance: TACROLIMUS
  11. HYDROCODONE [Concomitant]
     Active Substance: HYDROCODONE
     Dates: start: 20221220
  12. CEFTRIAXONE [Concomitant]
     Active Substance: CEFTRIAXONE\CEFTRIAXONE SODIUM
     Dates: start: 20231129

REACTIONS (12)
  - Cough [None]
  - Peripheral swelling [None]
  - Infusion site swelling [None]
  - Generalised oedema [None]
  - Throat tightness [None]
  - Chills [None]
  - Nasal congestion [None]
  - Swelling face [None]
  - Insomnia [None]
  - Tachycardia [None]
  - Hypertension [None]
  - Hypersensitivity [None]

NARRATIVE: CASE EVENT DATE: 20231201
